FAERS Safety Report 14932907 (Version 3)
Quarter: 2018Q2

REPORT INFORMATION
  Report Type: Report from Study
  Country: US (occurrence: US)
  Receive Date: 20180524
  Receipt Date: 20180618
  Transmission Date: 20180711
  Serious: Yes (Hospitalization, Other)
  Sender: FDA-Public Use
  Company Number: US-ASTELLAS-2018US002820

PATIENT
  Age: 50 Year
  Sex: Male
  Weight: 115 kg

DRUGS (35)
  1. TACROLIMUS. [Suspect]
     Active Substance: TACROLIMUS
     Dosage: 12 MG, ONCE DAILY (TWO 5MG CAPSULES EVERY MORNING AND TWO 1MG CAPSULES EVERY MORNING)
     Route: 048
     Dates: start: 20180201
  2. TYLENOL WITH CODEINE [Concomitant]
     Active Substance: ACETAMINOPHEN\CODEINE PHOSPHATE
     Indication: PAIN
     Dosage: 1 TABLET, EVERY 6 HOURS AS NEEDED
     Route: 048
  3. NOVOLOG [Concomitant]
     Active Substance: INSULIN ASPART
     Indication: PRODUCT USED FOR UNKNOWN INDICATION
     Dosage: 6-10 UNITS, THRICE DAILY
     Route: 065
  4. INSULIN NPH                        /01223208/ [Concomitant]
     Indication: PRODUCT USED FOR UNKNOWN INDICATION
     Dosage: 15 UNITS EVERY MORNING AND 5 UNITS EVERY NIGHT
     Route: 023
  5. TACROLIMUS. [Suspect]
     Active Substance: TACROLIMUS
     Dosage: 12 MG, ONCE DAILY (TWO 5MG CAPSULES EVERY MORNING AND TWO 1MG CAPSULES EVERY MORNING)
     Route: 048
     Dates: start: 20180227
  6. TACROLIMUS. [Suspect]
     Active Substance: TACROLIMUS
     Route: 048
     Dates: start: 20171230, end: 20180114
  7. VALCYTE [Concomitant]
     Active Substance: VALGANCICLOVIR HYDROCHLORIDE
     Indication: CYTOMEGALOVIRUS INFECTION
     Dosage: UNK UNK, UNKNOWN FREQ.
     Route: 065
  8. ZOFRAN [Concomitant]
     Active Substance: ONDANSETRON HYDROCHLORIDE
     Indication: NAUSEA
     Dosage: 1-2 TABLETS, EVERY 8 HOURS AS NEEDED
     Route: 048
  9. LIPITOR [Concomitant]
     Active Substance: ATORVASTATIN CALCIUM
     Indication: CHRONIC KIDNEY DISEASE
     Route: 065
  10. FIORICET WITH CODEINE [Concomitant]
     Active Substance: ACETAMINOPHEN\BUTALBITAL\CAFFEINE\CODEINE PHOSPHATE
     Indication: TENSION HEADACHE
     Dosage: 1 CAPSULE (50-325-40-30 MG), ONCE DAILY AS NEEDED
     Route: 048
  11. PRILOSEC [Concomitant]
     Active Substance: OMEPRAZOLE MAGNESIUM
     Indication: PRODUCT USED FOR UNKNOWN INDICATION
     Route: 048
  12. TACROLIMUS. [Suspect]
     Active Substance: TACROLIMUS
     Route: 048
     Dates: start: 20171230, end: 20180114
  13. TACROLIMUS. [Suspect]
     Active Substance: TACROLIMUS
     Indication: PROPHYLAXIS AGAINST TRANSPLANT REJECTION
     Route: 048
     Dates: start: 20170911
  14. IMURAN [Concomitant]
     Active Substance: AZATHIOPRINE
     Indication: PROPHYLAXIS
     Route: 048
     Dates: start: 20180108
  15. HYOSCYAMINE SULFATE. [Concomitant]
     Active Substance: HYOSCYAMINE SULFATE
     Indication: PRODUCT USED FOR UNKNOWN INDICATION
     Dosage: 0.125 MG, TWICE DAILY
     Route: 048
  16. BACTRIM DS [Concomitant]
     Active Substance: SULFAMETHOXAZOLE\TRIMETHOPRIM
     Indication: PRODUCT USED FOR UNKNOWN INDICATION
     Dosage: UNK UNK, UNKNOWN FREQ.
     Route: 065
  17. GANCICLOVIR. [Concomitant]
     Active Substance: GANCICLOVIR
     Indication: PRODUCT USED FOR UNKNOWN INDICATION
     Route: 042
  18. IMURAN [Concomitant]
     Active Substance: AZATHIOPRINE
     Indication: URINARY TRACT INFECTION
  19. DOMPERIDONE [Concomitant]
     Active Substance: DOMPERIDONE
     Indication: PRODUCT USED FOR UNKNOWN INDICATION
     Route: 048
  20. TOPAMAX [Concomitant]
     Active Substance: TOPIRAMATE
     Indication: PRODUCT USED FOR UNKNOWN INDICATION
     Route: 048
  21. ATORVASTATIN [Concomitant]
     Active Substance: ATORVASTATIN
     Indication: HYPERTENSION
     Route: 065
  22. AZATHIOPRINE. [Concomitant]
     Active Substance: AZATHIOPRINE
     Indication: PANCREAS TRANSPLANT REJECTION
     Route: 048
     Dates: start: 20170727
  23. TACROLIMUS. [Suspect]
     Active Substance: TACROLIMUS
     Route: 048
     Dates: start: 20180115
  24. LIPITOR [Concomitant]
     Active Substance: ATORVASTATIN CALCIUM
     Indication: HYPERTENSION
  25. ZOFRAN [Concomitant]
     Active Substance: ONDANSETRON HYDROCHLORIDE
     Indication: NAUSEA
     Dosage: 8 MG, EVERY 8 HOURS AS NEEDED
     Route: 048
  26. ZINC OXIDE. [Concomitant]
     Active Substance: ZINC OXIDE
     Indication: DRY SKIN
     Dosage: UNK UNK, AS NEEDED
     Route: 061
  27. PREDNISONE. [Concomitant]
     Active Substance: PREDNISONE
     Indication: PANCREAS TRANSPLANT REJECTION
     Route: 048
     Dates: start: 20170905
  28. TACROLIMUS. [Suspect]
     Active Substance: TACROLIMUS
     Indication: PROPHYLAXIS AGAINST TRANSPLANT REJECTION
     Route: 048
     Dates: start: 20170911
  29. TACROLIMUS. [Suspect]
     Active Substance: TACROLIMUS
     Dosage: 12 MG, ONCE DAILY (TWO 5MG CAPSULES EVERY MORNING AND TWO 1MG CAPSULES EVERY MORNING)
     Route: 048
     Dates: start: 20180201
  30. VITAMIN D2 [Concomitant]
     Active Substance: ERGOCALCIFEROL
     Indication: PRODUCT USED FOR UNKNOWN INDICATION
     Dosage: 50000 IU, EVERY 7 DAYS
     Route: 048
  31. EPIPEN [Concomitant]
     Active Substance: EPINEPHRINE
     Indication: ANAPHYLACTIC REACTION
     Dosage: 0.3 ML, AS NEEDED
     Route: 030
  32. MAG DELAY [Concomitant]
     Indication: PRODUCT USED FOR UNKNOWN INDICATION
     Route: 048
  33. TACROLIMUS. [Suspect]
     Active Substance: TACROLIMUS
     Dosage: 13 MG, ONCE DAILY (TWO 5MG CAPSULES EVERY MORNING AND THREE 1MG CAPSULES EVERY MORNING)
     Route: 048
     Dates: start: 20180115
  34. TACROLIMUS. [Suspect]
     Active Substance: TACROLIMUS
     Dosage: 12 MG, ONCE DAILY (TWO 5MG CAPSULES EVERY MORNING AND TWO 1MG CAPSULES EVERY MORNING)
     Route: 048
     Dates: start: 20180227
  35. DELTASONE [Concomitant]
     Active Substance: PREDNISONE
     Indication: PROPHYLAXIS
     Route: 048
     Dates: start: 20171009

REACTIONS (6)
  - Acute kidney injury [Recovered/Resolved]
  - Impaired gastric emptying [Recovered/Resolved]
  - Diarrhoea [Recovered/Resolved]
  - Acute kidney injury [Recovered/Resolved]
  - Acute kidney injury [Recovered/Resolved]
  - Renal tubular necrosis [Recovered/Resolved with Sequelae]

NARRATIVE: CASE EVENT DATE: 20170913
